FAERS Safety Report 24201711 (Version 1)
Quarter: 2024Q3

REPORT INFORMATION
  Report Type: Spontaneous
  Country: US (occurrence: US)
  Receive Date: 20240812
  Receipt Date: 20240812
  Transmission Date: 20241016
  Serious: No
  Sender: SANDOZ
  Company Number: US-SANDOZ-SDZ2024US072030

PATIENT
  Sex: Female
  Weight: 57.143 kg

DRUGS (2)
  1. LISINOPRIL [Suspect]
     Active Substance: LISINOPRIL
     Indication: Product used for unknown indication
     Dosage: UNK
     Route: 065
  2. LEQVIO [Concomitant]
     Active Substance: INCLISIRAN SODIUM
     Indication: Blood cholesterol
     Dosage: 284 MG, ONE SINGLE DOSE
     Route: 058
     Dates: start: 20240514

REACTIONS (1)
  - Drug hypersensitivity [Unknown]
